FAERS Safety Report 18808579 (Version 2)
Quarter: 2021Q1

REPORT INFORMATION
  Report Type: Report from Study
  Country: US (occurrence: US)
  Receive Date: 20210129
  Receipt Date: 20210208
  Transmission Date: 20210419
  Serious: Yes (Life-Threatening, Other)
  Sender: FDA-Public Use
  Company Number: US-SUNOVION-2021SUN000138

PATIENT
  Age: 67 Year
  Sex: Male

DRUGS (4)
  1. CARBIDOPA AND LEVODOPA [Concomitant]
     Active Substance: CARBIDOPA\LEVODOPA
     Dosage: UNK
     Dates: end: 20210121
  2. KYNMOBI [Suspect]
     Active Substance: APOMORPHINE HYDROCHLORIDE
     Indication: PARKINSON^S DISEASE
     Dosage: 10 MG
     Route: 060
     Dates: start: 20210115
  3. KYNMOBI [Suspect]
     Active Substance: APOMORPHINE HYDROCHLORIDE
     Dosage: 10 MG
     Route: 060
     Dates: start: 20210121, end: 20210121
  4. CARBIDOPA AND LEVODOPA [Concomitant]
     Active Substance: CARBIDOPA\LEVODOPA
     Indication: PARKINSON^S DISEASE
     Dosage: UNK
     Dates: end: 20210115

REACTIONS (8)
  - Hypotension [Recovered/Resolved]
  - Urinary incontinence [Unknown]
  - Unresponsive to stimuli [Recovered/Resolved]
  - Headache [Unknown]
  - Hyperhidrosis [Unknown]
  - Nausea [Unknown]
  - Dysstasia [Unknown]
  - Tremor [Unknown]

NARRATIVE: CASE EVENT DATE: 20210115
